FAERS Safety Report 7036228-4 (Version None)
Quarter: 2010Q4

REPORT INFORMATION
  Report Type: 
  Country: None (occurrence: None)
  Receive Date: 20101008
  Receipt Date: 20100929
  Transmission Date: 20110411
  Serious: Yes (Other)
  Sender: FDA-Public Use
  Company Number: PHHY2010US64834

PATIENT
  Age: 63 Year
  Sex: Female
  Weight: 119 kg

DRUGS (7)
  1. RECLAST [Suspect]
     Indication: OSTEOPOROSIS
     Dosage: 5 MG, ONCE PER YEAR
     Route: 042
     Dates: start: 20100909
  2. NEXIUM [Concomitant]
  3. CALCIUM [Concomitant]
  4. KLONOPIN [Concomitant]
  5. FISH OIL [Concomitant]
  6. VITAMIN D [Concomitant]
  7. MULTI-VITAMINS [Concomitant]

REACTIONS (6)
  - ABDOMINAL PAIN [None]
  - DIZZINESS [None]
  - DYSPEPSIA [None]
  - GASTROENTERITIS [None]
  - PAIN [None]
  - PYREXIA [None]
